FAERS Safety Report 7449726-6 (Version None)
Quarter: 2011Q2

REPORT INFORMATION
  Report Type: 
  Country: None (occurrence: None)
  Receive Date: 20110502
  Receipt Date: 20110418
  Transmission Date: 20111010
  Serious: Yes (Other)
  Sender: FDA-Public Use
  Company Number: US-JNJFOC-20110407940

PATIENT
  Sex: Female
  Weight: 117.94 kg

DRUGS (5)
  1. SERTRALINE [Concomitant]
     Indication: DEPRESSION
     Route: 048
  2. ASACOL [Concomitant]
     Indication: CROHN'S DISEASE
     Route: 048
  3. LISINOPRIL [Concomitant]
     Indication: HYPERTENSION
     Route: 048
  4. REMICADE [Suspect]
     Indication: CROHN'S DISEASE
     Dosage: 3 INFUSIONS
     Route: 042
  5. ATENOLOL [Concomitant]
     Indication: HYPERTENSION
     Route: 048

REACTIONS (4)
  - SKIN DISORDER [None]
  - RASH GENERALISED [None]
  - SKIN LESION [None]
  - SKIN EXFOLIATION [None]
